FAERS Safety Report 5073449-4 (Version None)
Quarter: 2006Q3

REPORT INFORMATION
  Report Type: 
  Country: None (occurrence: None)
  Receive Date: 20060803
  Receipt Date: 20060721
  Transmission Date: 20061208
  Serious: Yes (Life-Threatening, Hospitalization, Other)
  Sender: FDA-Public Use
  Company Number: 2006085502

PATIENT
  Age: 57 Year
  Sex: Female

DRUGS (2)
  1. DEPO-MEDROL [Suspect]
     Indication: HERNIA PAIN
     Dosage: 40 MG (40 MG,1 ), INTRATHECAL
     Route: 037
     Dates: start: 20060704, end: 20060704
  2. ROPIVACAINE HYDROCHLORIDE [Concomitant]

REACTIONS (5)
  - ARTERIAL SPASM [None]
  - BRAIN DEATH [None]
  - HAEMORRHAGIC CEREBRAL INFARCTION [None]
  - PAIN IN EXTREMITY [None]
  - THROMBOSIS [None]
